FAERS Safety Report 8258351-9 (Version None)
Quarter: 2012Q1

REPORT INFORMATION
  Report Type: 
  Country: None (occurrence: None)
  Receive Date: 20120322
  Receipt Date: 20120125
  Transmission Date: 20120608
  Serious: Yes (Hospitalization)
  Sender: FDA-Public Use
  Company Number: UTC-014978

PATIENT
  Age: 60 Year
  Sex: Female
  Weight: 104.5 kg

DRUGS (6)
  1. TRACLEER [Concomitant]
  2. ADCIRCA [Concomitant]
  3. DIURETICS (DIURETICS) [Concomitant]
  4. TYVASO [Suspect]
     Indication: PULMONARY ARTERIAL HYPERTENSION
     Dosage: 288  MCG(72 MCG,4 IN 1 D),INHALATION, 192 MCG (48 MCG,4 IN 1 D),INHALATION
     Route: 055
     Dates: start: 20120101
  5. TYVASO [Suspect]
     Indication: PULMONARY ARTERIAL HYPERTENSION
     Dosage: 288  MCG(72 MCG,4 IN 1 D),INHALATION, 192 MCG (48 MCG,4 IN 1 D),INHALATION
     Route: 055
     Dates: start: 20110118
  6. TYVASO [Suspect]

REACTIONS (4)
  - DEVICE RELATED SEPSIS [None]
  - MYOCARDIAL INFARCTION [None]
  - CANDIDIASIS [None]
  - DRUG DOSE OMISSION [None]
